FAERS Safety Report 22288611 (Version 1)
Quarter: 2023Q2

REPORT INFORMATION
  Report Type: Spontaneous
  Country: US (occurrence: None)
  Receive Date: 20230504
  Receipt Date: 20230504
  Transmission Date: 20230721
  Serious: Yes (Other)
  Sender: FDA-Public Use
  Company Number: None

PATIENT
  Age: 81 Year
  Sex: Male
  Weight: 70.2 kg

DRUGS (7)
  1. MOLNUPIRAVIR [Suspect]
     Active Substance: MOLNUPIRAVIR
     Indication: COVID-19
     Dosage: FREQUENCY : TWICE A DAY;?
     Route: 048
     Dates: start: 20230502, end: 20230503
  2. METOPROLOL TARTRATE [Concomitant]
     Active Substance: METOPROLOL TARTRATE
     Dates: start: 20230502
  3. HEPARIN [Concomitant]
     Active Substance: HEPARIN SODIUM
     Dates: start: 20230502, end: 20230503
  4. furosemide 120mg [Concomitant]
     Dates: start: 20230502, end: 20230502
  5. APIXABAN [Concomitant]
     Active Substance: APIXABAN
     Dates: start: 20230502, end: 20230504
  6. sevelamer 1600mg [Concomitant]
     Dates: start: 20230503
  7. ipratropium (Atrovent CFC) [Concomitant]
     Dates: start: 20230503

REACTIONS (3)
  - Liver function test increased [None]
  - International normalised ratio increased [None]
  - Hepatic cirrhosis [None]

NARRATIVE: CASE EVENT DATE: 20230503
